FAERS Safety Report 24626331 (Version 3)
Quarter: 2025Q3

REPORT INFORMATION
  Report Type: Spontaneous
  Country: US (occurrence: US)
  Receive Date: 20241115
  Receipt Date: 20250701
  Transmission Date: 20251021
  Serious: No
  Sender: SANOFI AVENTIS
  Company Number: US-SA-2024SA329327

PATIENT
  Age: 10 Year
  Sex: Male

DRUGS (19)
  1. DUPIXENT [Suspect]
     Active Substance: DUPILUMAB
     Indication: Asthma
     Dosage: 200 MG, QOW
     Route: 058
     Dates: start: 20231219
  2. DUPIXENT [Suspect]
     Active Substance: DUPILUMAB
     Dosage: 200 MG, QOW
     Route: 058
  3. ALBUTEROL [Concomitant]
     Active Substance: ALBUTEROL
  4. ATROVENT [Concomitant]
     Active Substance: IPRATROPIUM BROMIDE
  5. AZITHROMYCIN [Concomitant]
     Active Substance: AZITHROMYCIN
  6. BUDESONIDE [Concomitant]
     Active Substance: BUDESONIDE
  7. CETIRIZINE [Concomitant]
     Active Substance: CETIRIZINE HYDROCHLORIDE
  8. CROMOLYN SODIUM [Concomitant]
     Active Substance: CROMOLYN SODIUM
  9. DULERA [Concomitant]
     Active Substance: FORMOTEROL FUMARATE DIHYDRATE\MOMETASONE FUROATE
  10. EPINEPHRINE [Concomitant]
     Active Substance: EPINEPHRINE
  11. FAMOTIDINE [Concomitant]
     Active Substance: FAMOTIDINE
  12. FLUTICASONE [Concomitant]
     Active Substance: FLUTICASONE
  13. HYDROXYZINE HYDROCHLORIDE [Concomitant]
     Active Substance: HYDROXYZINE HYDROCHLORIDE
  14. MONTELUKAST SODIUM [Concomitant]
     Active Substance: MONTELUKAST SODIUM
  15. PANTOPRAZOLE [Concomitant]
     Active Substance: PANTOPRAZOLE
  16. PREDNISOLONE [Concomitant]
     Active Substance: PREDNISOLONE
  17. VENTOLIN HFA [Concomitant]
     Active Substance: ALBUTEROL SULFATE
  18. VITAMIN D [Concomitant]
     Active Substance: VITAMIN D NOS
  19. CETIRIZINE [Concomitant]
     Active Substance: CETIRIZINE HYDROCHLORIDE

REACTIONS (3)
  - Eye irritation [Not Recovered/Not Resolved]
  - Product dose omission in error [Unknown]
  - Drug ineffective [Unknown]

NARRATIVE: CASE EVENT DATE: 20241104
